FAERS Safety Report 18456320 (Version 17)
Quarter: 2024Q3

REPORT INFORMATION
  Report Type: Report from Study
  Country: DE (occurrence: DE)
  Receive Date: 20201103
  Receipt Date: 20240909
  Transmission Date: 20241016
  Serious: No
  Sender: ROCHE
  Company Number: DE-ROCHE-2707219

PATIENT
  Age: 47 Year
  Sex: Female

DRUGS (5)
  1. OCREVUS [Suspect]
     Active Substance: OCRELIZUMAB
     Indication: Relapsing-remitting multiple sclerosis
     Dosage: 600 MG ONCE IN 169 DAYS
     Route: 042
     Dates: start: 20201026
  2. OCREVUS [Suspect]
     Active Substance: OCRELIZUMAB
     Dosage: SECOND INITIAL DOSE
     Route: 042
     Dates: start: 20201109
  3. OCREVUS [Suspect]
     Active Substance: OCRELIZUMAB
     Dosage: SUBSEQUENT DOSES: 600 MG EVERY 175 DAYS
     Route: 042
     Dates: start: 20210426
  4. MODERNA COVID-19 VACCINE [Suspect]
     Active Substance: ELASOMERAN
     Indication: COVID-19 prophylaxis
     Route: 065
  5. OFATUMUMAB [Concomitant]
     Active Substance: OFATUMUMAB

REACTIONS (14)
  - Fatigue [Not Recovered/Not Resolved]
  - General physical health deterioration [Recovered/Resolved]
  - Pyrexia [Recovered/Resolved]
  - Cardiovascular disorder [Recovered/Resolved]
  - Nasopharyngitis [Recovered/Resolved]
  - COVID-19 [Recovered/Resolved]
  - Dizziness [Recovered/Resolved]
  - Eye pruritus [Recovered/Resolved]
  - Eye irritation [Recovered/Resolved]
  - Eye discharge [Recovered/Resolved]
  - Neurodermatitis [Unknown]
  - Seasonal allergy [Unknown]
  - Hypersensitivity [Not Recovered/Not Resolved]
  - Drug intolerance [Recovered/Resolved]

NARRATIVE: CASE EVENT DATE: 20201026
